FAERS Safety Report 5735654-0 (Version None)
Quarter: 2008Q2

REPORT INFORMATION
  Report Type: 
  Country: None (occurrence: None)
  Receive Date: 20080512
  Receipt Date: 20080505
  Transmission Date: 20081010
  Serious: Yes (Other)
  Sender: FDA-Public Use
  Company Number: US-PFIZER INC-2008039207

PATIENT
  Sex: Female
  Weight: 65 kg

DRUGS (4)
  1. ESTRING [Suspect]
  2. TOPROL-XL [Concomitant]
     Indication: CARDIAC DISORDER
  3. LAMICTAL [Concomitant]
     Indication: EPILEPSY
  4. COMBIPATCH [Concomitant]

REACTIONS (1)
  - VAGINAL INFECTION [None]
